FAERS Safety Report 18607900 (Version 1)
Quarter: 2020Q4

REPORT INFORMATION
  Report Type: Spontaneous
  Country: CN (occurrence: CN)
  Receive Date: 20201211
  Receipt Date: 20201211
  Transmission Date: 20210114
  Serious: Yes (Other)
  Sender: FDA-Public Use
  Company Number: CN-ASTRAZENECA-2020SF64769

PATIENT
  Age: 16 Year
  Sex: Female
  Weight: 50 kg

DRUGS (2)
  1. BRICANYL [Concomitant]
     Active Substance: TERBUTALINE SULFATE
     Indication: RESPIRATORY TRACT OEDEMA
     Route: 055
     Dates: start: 20200812, end: 20200812
  2. PULMICORT RESPULES [Suspect]
     Active Substance: BUDESONIDE
     Indication: RESPIRATORY TRACT OEDEMA
     Route: 055
     Dates: start: 20200812, end: 20200812

REACTIONS (2)
  - Dizziness [Recovered/Resolved]
  - Heart rate increased [Recovering/Resolving]

NARRATIVE: CASE EVENT DATE: 20200812
